FAERS Safety Report 24299280 (Version 1)
Quarter: 2024Q3

REPORT INFORMATION
  Report Type: Spontaneous
  Country: US (occurrence: None)
  Receive Date: 20240909
  Receipt Date: 20240909
  Transmission Date: 20241017
  Serious: Yes (Hospitalization)
  Sender: Public
  Company Number: None

PATIENT
  Age: 33 Year
  Sex: Female
  Weight: 126 kg

DRUGS (4)
  1. SEMAGLUTIDE [Suspect]
     Active Substance: SEMAGLUTIDE
     Indication: Weight decreased
     Dates: start: 20230601, end: 20230727
  2. LEVOTHYROXINE [Concomitant]
     Active Substance: LEVOTHYROXINE\LEVOTHYROXINE SODIUM
  3. MAGNESIUM GLYCINATE [Concomitant]
  4. FISH OIL [Concomitant]
     Active Substance: FISH OIL

REACTIONS (4)
  - Adverse reaction [None]
  - Constipation [None]
  - Abdominal pain upper [None]
  - Diarrhoea [None]

NARRATIVE: CASE EVENT DATE: 20230714
